FAERS Safety Report 20430218 (Version 1)
Quarter: 2022Q1

REPORT INFORMATION
  Report Type: Spontaneous
  Country: US (occurrence: US)
  Receive Date: 20220204
  Receipt Date: 20220204
  Transmission Date: 20220424
  Serious: No
  Sender: FDA-Public Use
  Company Number: US-PFIZER INC-202200143189

PATIENT
  Age: 80 Year
  Sex: Female
  Weight: 62.1 kg

DRUGS (1)
  1. PAXLOVID [Suspect]
     Active Substance: NIRMATRELVIR\RITONAVIR
     Indication: COVID-19
     Dosage: 150MG FOR THE NIRMATRELVIR AND 100MG OF THE RITONAVIR, 2X/DAY
     Route: 048

REACTIONS (1)
  - Incorrect dose administered [Unknown]
